FAERS Safety Report 9736342 (Version 2)
Quarter: 2013Q4

REPORT INFORMATION
  Report Type: Spontaneous
  Country: FR (occurrence: FR)
  Receive Date: 20131206
  Receipt Date: 20131230
  Transmission Date: 20140711
  Serious: Yes (Other)
  Sender: FDA-Public Use
  Company Number: FR-ABBVIE-13P-056-1176730-00

PATIENT
  Age: 65 Year
  Sex: Female

DRUGS (6)
  1. ZECLAR [Suspect]
     Indication: MYCOBACTERIUM AVIUM COMPLEX INFECTION
     Route: 048
     Dates: start: 2005
  2. DEXAMBUTOL [Suspect]
     Indication: MYCOBACTERIUM AVIUM COMPLEX INFECTION
     Route: 048
     Dates: start: 2005
  3. ANSATIPINE [Suspect]
     Indication: MYCOBACTERIUM AVIUM COMPLEX INFECTION
     Route: 048
     Dates: start: 2005
  4. AUGMENTIN [Concomitant]
     Indication: INFLUENZA
     Route: 048
     Dates: start: 2012
  5. DOLIPRANE [Concomitant]
     Indication: INFLUENZA
     Route: 048
     Dates: start: 2012
  6. TAREG [Concomitant]
     Indication: HYPERTENSION
     Route: 048
     Dates: start: 2012

REACTIONS (6)
  - Visual acuity reduced [Recovering/Resolving]
  - Toxicity to various agents [Unknown]
  - Neuropathy peripheral [Unknown]
  - Visual field defect [Unknown]
  - Influenza [Unknown]
  - Vision blurred [Unknown]
